FAERS Safety Report 5216091-4 (Version None)
Quarter: 2007Q1

REPORT INFORMATION
  Report Type: 
  Country: None (occurrence: None)
  Receive Date: 20070123
  Receipt Date: 20070111
  Transmission Date: 20070707
  Serious: Yes (Hospitalization, Other)
  Sender: FDA-Public Use
  Company Number: US-PFIZER INC-2007003966

PATIENT
  Age: 78 Year
  Sex: Female
  Weight: 47.6 kg

DRUGS (3)
  1. CELEBREX [Suspect]
     Indication: ROTATOR CUFF SYNDROME
  2. CELEBREX [Suspect]
     Indication: OSTEOPOROSIS
  3. TYLENOL [Concomitant]

REACTIONS (1)
  - LOSS OF CONSCIOUSNESS [None]
